FAERS Safety Report 8780620 (Version 6)
Quarter: 2015Q3

REPORT INFORMATION
  Report Type: Spontaneous
  Country: US (occurrence: US)
  Receive Date: 20120913
  Receipt Date: 20150923
  Transmission Date: 20151125
  Serious: Yes (Death, Hospitalization, Other)
  Sender: FDA-Public Use
  Company Number: US-SANOFI-AVENTIS-2012SA066752

PATIENT
  Age: 87 Year
  Sex: Male

DRUGS (11)
  1. PLAVIX [Suspect]
     Active Substance: CLOPIDOGREL BISULFATE
     Indication: VERTEBROBASILAR INSUFFICIENCY
     Route: 065
     Dates: start: 20011010, end: 20070720
  2. ASPIRIN. [Concomitant]
     Active Substance: ASPIRIN
  3. LIPITOR [Concomitant]
     Active Substance: ATORVASTATIN CALCIUM
  4. NORVASC [Concomitant]
     Active Substance: AMLODIPINE BESYLATE
  5. BUMEX [Concomitant]
     Active Substance: BUMETANIDE
  6. NEXIUM [Concomitant]
     Active Substance: ESOMEPRAZOLE MAGNESIUM
  7. VITAMIN C [Concomitant]
     Active Substance: ASCORBIC ACID
  8. MICARDIS [Concomitant]
     Active Substance: TELMISARTAN
  9. SKELAXIN [Concomitant]
     Active Substance: METAXALONE
  10. PREVACID [Concomitant]
     Active Substance: LANSOPRAZOLE
  11. TENORMIN [Concomitant]
     Active Substance: ATENOLOL

REACTIONS (2)
  - Multiple injuries [Unknown]
  - Thrombotic thrombocytopenic purpura [Fatal]

NARRATIVE: CASE EVENT DATE: 200707
